FAERS Safety Report 24066827 (Version 2)
Quarter: 2024Q3

REPORT INFORMATION
  Report Type: Spontaneous
  Country: AU (occurrence: AU)
  Receive Date: 20240709
  Receipt Date: 20240711
  Transmission Date: 20241016
  Serious: Yes (Hospitalization)
  Sender: ABBVIE
  Company Number: AU-ABBVIE-5829032

PATIENT
  Age: 65 Year
  Sex: Male

DRUGS (3)
  1. VENETOCLAX [Suspect]
     Active Substance: VENETOCLAX
     Indication: Chronic lymphocytic leukaemia
     Route: 048
     Dates: start: 20200911, end: 20220829
  2. RITUXIMAB [Suspect]
     Active Substance: RITUXIMAB
     Indication: Chronic lymphocytic leukaemia
     Route: 042
     Dates: start: 20181101, end: 20210311
  3. BENDAMUSTINE HYDROCHLORIDE [Concomitant]
     Active Substance: BENDAMUSTINE HYDROCHLORIDE
     Indication: Chronic lymphocytic leukaemia
     Dates: start: 20181101, end: 20190408

REACTIONS (10)
  - Progressive multifocal leukoencephalopathy [Not Recovered/Not Resolved]
  - Unevaluable event [Unknown]
  - Confusional state [Unknown]
  - Dysarthria [Unknown]
  - Somnolence [Unknown]
  - Memory impairment [Unknown]
  - Fall [Unknown]
  - Visual impairment [Unknown]
  - Balance disorder [Unknown]
  - Cognitive disorder [Unknown]

NARRATIVE: CASE EVENT DATE: 20221201
